FAERS Safety Report 9433855 (Version 1)
Quarter: 2013Q3

REPORT INFORMATION
  Report Type: Spontaneous
  Country: US (occurrence: US)
  Receive Date: 20130731
  Receipt Date: 20130731
  Transmission Date: 20140515
  Serious: No
  Sender: FDA-Public Use
  Company Number: US-ASTRAZENECA-2013SE52396

PATIENT
  Age: 22 Year
  Sex: Male

DRUGS (1)
  1. SEROQUEL XR [Suspect]
     Indication: ADVERSE EVENT
     Route: 048

REACTIONS (2)
  - Cataract [Unknown]
  - Off label use [Unknown]
